FAERS Safety Report 5209002-9 (Version None)
Quarter: 2007Q1

REPORT INFORMATION
  Report Type: 
  Country: None (occurrence: None)
  Receive Date: 20070116
  Receipt Date: 20061029
  Transmission Date: 20070707
  Serious: Yes (Other)
  Sender: FDA-Public Use
  Company Number: DE-ELI_LILLY_AND_COMPANY-DE200612002658

PATIENT
  Age: 18 Month
  Weight: 14 kg

DRUGS (1)
  1. YENTREVE [Suspect]
     Dosage: 20 MG, UNK
     Route: 048
     Dates: start: 20061029

REACTIONS (1)
  - ACCIDENTAL DRUG INTAKE BY CHILD [None]
